FAERS Safety Report 6253604-8 (Version None)
Quarter: 2009Q3

REPORT INFORMATION
  Report Type: 
  Country: None (occurrence: None)
  Receive Date: 20090701
  Receipt Date: 20081205
  Transmission Date: 20100115
  Serious: Yes (Death)
  Sender: FDA-Public Use
  Company Number: PE-PFIZER INC-2008099908

PATIENT
  Sex: Female

DRUGS (3)
  1. LYRICA [Suspect]
     Indication: NEURALGIA
     Dosage: 75 MG, 2X/DAY
     Dates: start: 20080821
  2. ASPIRIN [Concomitant]
     Dosage: UNK
  3. MICARDIS HCT [Concomitant]
     Dosage: UNK

REACTIONS (1)
  - PNEUMONIA [None]
